FAERS Safety Report 12947310 (Version 1)
Quarter: 2016Q4

REPORT INFORMATION
  Report Type: Spontaneous
  Country: US (occurrence: US)
  Receive Date: 20161116
  Receipt Date: 20161116
  Transmission Date: 20170207
  Serious: Yes (Other)
  Sender: FDA-Public Use
  Company Number: US-PFIZER INC-2016528453

PATIENT
  Age: 67 Year
  Sex: Male
  Weight: 117 kg

DRUGS (5)
  1. LYRICA [Suspect]
     Active Substance: PREGABALIN
     Dosage: 150 MG, DAILY ((150 MG 1 PO QD))
     Route: 048
  2. LISINOPRIL AND HYDROCHLOROTHIAZIDE [Concomitant]
     Active Substance: HYDROCHLOROTHIAZIDE\LISINOPRIL
     Dosage: 1 DF, DAILY (HYDROCHLOROTHIAZIDE: 12.5MG/LISINOPRIL: 20MG)
     Route: 048
     Dates: start: 20160629
  3. LYRICA [Suspect]
     Active Substance: PREGABALIN
     Dosage: 150 MG, 2X/DAY
     Route: 048
  4. CITALOPRAM [Concomitant]
     Active Substance: CITALOPRAM HYDROBROMIDE
     Dosage: 20 MG, DAILY
     Route: 048
     Dates: start: 20160629
  5. GABAPENTIN. [Concomitant]
     Active Substance: GABAPENTIN
     Dosage: 100 MG, 3X/DAY
     Route: 048
     Dates: start: 20160701

REACTIONS (17)
  - Hypersomnia [Unknown]
  - Fatigue [Unknown]
  - Disturbance in attention [Unknown]
  - Prostate cancer [Unknown]
  - Initial insomnia [Unknown]
  - Restlessness [Unknown]
  - Bradyphrenia [Unknown]
  - Hypertension [Unknown]
  - Asthenia [Unknown]
  - Increased appetite [Unknown]
  - Suicidal ideation [Unknown]
  - Decreased interest [Unknown]
  - Decreased appetite [Unknown]
  - Bradykinesia [Unknown]
  - Prostatic specific antigen increased [Unknown]
  - Syncope [Unknown]
  - Depression [Unknown]

NARRATIVE: CASE EVENT DATE: 20160629
